FAERS Safety Report 8138751 (Version 35)
Quarter: 2014Q2

REPORT INFORMATION
  Report Type: Spontaneous
  Country: CA (occurrence: CA)
  Receive Date: 20110915
  Receipt Date: 20140428
  Transmission Date: 20141212
  Serious: Yes (Other)
  Sender: FDA-Public Use
  Company Number: CA-ROCHE-GNE323941

PATIENT
  Age: 33 Year
  Sex: Male
  Weight: 106 kg

DRUGS (25)
  1. XOLAIR [Suspect]
     Indication: ASTHMA
     Route: 058
     Dates: start: 20110525
  2. XOLAIR [Suspect]
     Indication: RHINITIS
     Route: 058
     Dates: start: 20120201
  3. XOLAIR [Suspect]
     Route: 058
     Dates: start: 20120229
  4. XOLAIR [Suspect]
     Route: 058
     Dates: start: 20120829
  5. XOLAIR [Suspect]
     Route: 058
     Dates: start: 20120912
  6. XOLAIR [Suspect]
     Route: 058
     Dates: start: 20121205
  7. XOLAIR [Suspect]
     Route: 058
     Dates: start: 20130102
  8. XOLAIR [Suspect]
     Route: 058
     Dates: start: 20130213
  9. XOLAIR [Suspect]
     Route: 058
     Dates: start: 20130417
  10. XOLAIR [Suspect]
     Route: 058
     Dates: start: 20130515
  11. XOLAIR [Suspect]
     Route: 058
     Dates: start: 20130610
  12. XOLAIR [Suspect]
     Route: 058
     Dates: start: 20130624
  13. XOLAIR [Suspect]
     Route: 058
     Dates: start: 20130722
  14. XOLAIR [Suspect]
     Route: 058
     Dates: start: 20130903
  15. XOLAIR [Suspect]
     Route: 058
     Dates: start: 201309
  16. XOLAIR [Suspect]
     Route: 058
     Dates: start: 20130930
  17. XOLAIR [Suspect]
     Route: 058
     Dates: start: 20131021
  18. XOLAIR [Suspect]
     Route: 058
     Dates: start: 20131104
  19. XOLAIR [Suspect]
     Route: 058
     Dates: start: 20131118
  20. XOLAIR [Suspect]
     Route: 058
     Dates: start: 20131230
  21. XOLAIR [Suspect]
     Route: 058
     Dates: start: 20140127
  22. XOLAIR [Suspect]
     Route: 058
     Dates: start: 20130311
  23. XOLAIR [Suspect]
     Route: 058
     Dates: start: 20140417
  24. ADVAIR [Concomitant]
     Indication: PRODUCT USED FOR UNKNOWN INDICATION
  25. SINGULAIR [Concomitant]
     Indication: PRODUCT USED FOR UNKNOWN INDICATION

REACTIONS (33)
  - Blood pressure increased [Not Recovered/Not Resolved]
  - Lower respiratory tract infection [Recovered/Resolved]
  - Hypersensitivity [Unknown]
  - Sinus congestion [Unknown]
  - Pneumonia [Recovered/Resolved]
  - Allergic sinusitis [Unknown]
  - Poor quality sleep [Unknown]
  - Malaise [Unknown]
  - Fatigue [Unknown]
  - Discomfort [Unknown]
  - Nasopharyngitis [Recovered/Resolved]
  - Dyspnoea [Unknown]
  - Cough [Unknown]
  - Nasal congestion [Unknown]
  - Heart rate increased [Recovered/Resolved]
  - Respiratory disorder [Unknown]
  - Family stress [Unknown]
  - Weight increased [Recovering/Resolving]
  - Paranasal sinus hypersecretion [Unknown]
  - Therapeutic response decreased [Unknown]
  - Wheezing [Unknown]
  - Heart rate decreased [Recovered/Resolved]
  - Pyrexia [Unknown]
  - Cold sweat [Unknown]
  - Pain [Unknown]
  - Infection [Recovered/Resolved]
  - Headache [Unknown]
  - Myalgia [Unknown]
  - Stress [Unknown]
  - Productive cough [Unknown]
  - Gastroenteritis viral [Recovered/Resolved]
  - Asthma [Unknown]
  - Local swelling [Unknown]
